FAERS Safety Report 7925887-7 (Version None)
Quarter: 2011Q4

REPORT INFORMATION
  Report Type: 
  Country: None (occurrence: None)
  Receive Date: 20111118
  Receipt Date: 20110414
  Transmission Date: 20120403
  Serious: No
  Sender: FDA-Public Use
  Company Number: US-AMGEN-USASP2011019848

PATIENT
  Age: 42 Year
  Sex: Female

DRUGS (1)
  1. ENBREL [Suspect]
     Indication: PSORIASIS
     Dosage: 50 MG, 2 TIMES/WK
     Dates: start: 20110323, end: 20110301

REACTIONS (5)
  - OEDEMA PERIPHERAL [None]
  - BURNING SENSATION [None]
  - JOINT SWELLING [None]
  - PRURITUS [None]
  - PSORIASIS [None]
